FAERS Safety Report 14680816 (Version 1)
Quarter: 2018Q1

REPORT INFORMATION
  Report Type: Report from Study
  Country: US (occurrence: US)
  Receive Date: 20180326
  Receipt Date: 20180326
  Transmission Date: 20180509
  Serious: Yes (Hospitalization, Other)
  Sender: FDA-Public Use
  Company Number: US-TESARO, INC.-US-2017TSO04460

PATIENT

DRUGS (2)
  1. ZEJULA [Suspect]
     Active Substance: NIRAPARIB
     Dosage: 200 MG, QD
     Route: 048
     Dates: start: 20180109, end: 201802
  2. ZEJULA [Suspect]
     Active Substance: NIRAPARIB
     Indication: MALIGNANT PERITONEAL NEOPLASM
     Dosage: 300 MG, QD
     Route: 048
     Dates: start: 20171111, end: 201712

REACTIONS (10)
  - Fall [Not Recovered/Not Resolved]
  - Transient ischaemic attack [Not Recovered/Not Resolved]
  - Contusion [Not Recovered/Not Resolved]
  - Blood count abnormal [Not Recovered/Not Resolved]
  - Nausea [Not Recovered/Not Resolved]
  - Amnesia [Unknown]
  - Anaemia [Unknown]
  - Disorientation [Not Recovered/Not Resolved]
  - Pain [Not Recovered/Not Resolved]
  - Insomnia [Not Recovered/Not Resolved]

NARRATIVE: CASE EVENT DATE: 20171210
